FAERS Safety Report 9135858 (Version 1)
Quarter: 2013Q1

REPORT INFORMATION
  Report Type: Spontaneous
  Country: US (occurrence: US)
  Receive Date: 20130304
  Receipt Date: 20130304
  Transmission Date: 20140127
  Serious: No
  Sender: FDA-Public Use
  Company Number: US-ABBOTT-12P-163-0974411-00

PATIENT
  Sex: Male
  Weight: 86.26 kg

DRUGS (2)
  1. ANDROGEL 1% [Suspect]
     Indication: PRODUCT USED FOR UNKNOWN INDICATION
     Dosage: PACKETS, APPLIED TO STOMACH, 5G DAILY
     Dates: start: 201207, end: 201208
  2. ANDROGEL 1.62% [Suspect]
     Indication: BLOOD TESTOSTERONE DECREASED
     Dosage: 4 PUMPS TOTAL DAILY, 81MG DAILY
     Dates: start: 201208

REACTIONS (2)
  - Blood testosterone decreased [Unknown]
  - Pain in extremity [Unknown]
